FAERS Safety Report 6256443-7 (Version None)
Quarter: 2009Q3

REPORT INFORMATION
  Report Type: 
  Country: None (occurrence: None)
  Receive Date: 20090706
  Receipt Date: 20090701
  Transmission Date: 20100115
  Serious: Yes (Death, Life-Threatening)
  Sender: FDA-Public Use
  Company Number: JP-JNJFOC-20090700966

PATIENT
  Age: 65 Year
  Sex: Male
  Weight: 47 kg

DRUGS (14)
  1. DUROTEP MT [Suspect]
     Route: 062
  2. DUROTEP MT [Suspect]
     Indication: CANCER PAIN
     Route: 062
  3. RISPERDAL [Concomitant]
     Route: 048
  4. RISPERDAL [Concomitant]
     Route: 048
  5. URSO 250 [Concomitant]
     Indication: HEPATIC FUNCTION ABNORMAL
     Route: 048
  6. GASMOTIN [Concomitant]
     Route: 048
  7. DAI-KENCHU-TO [Concomitant]
     Route: 048
  8. BIOFERMIN [Concomitant]
     Route: 048
  9. PROTECADIN [Concomitant]
     Route: 048
  10. RISUMIC [Concomitant]
     Route: 048
  11. LULLAN [Concomitant]
     Route: 048
  12. ROHYPNOL [Concomitant]
     Route: 048
  13. ROHYPNOL [Concomitant]
     Route: 048
  14. TETRAMIDE [Concomitant]
     Route: 048

REACTIONS (1)
  - PNEUMONIA ASPIRATION [None]
